FAERS Safety Report 17514462 (Version 1)
Quarter: 2020Q1

REPORT INFORMATION
  Report Type: Spontaneous
  Country: US (occurrence: US)
  Receive Date: 20200309
  Receipt Date: 20200309
  Transmission Date: 20200409
  Serious: No
  Sender: FDA-Public Use
  Company Number: US-009507513-2003USA002669

PATIENT
  Sex: Female
  Weight: 141.32 kg

DRUGS (1)
  1. NEXPLANON [Suspect]
     Active Substance: ETONOGESTREL
     Dosage: STRENGTH 68 MG, 1 ROD EVERY 3 YEARS
     Route: 059
     Dates: start: 20190207, end: 20200305

REACTIONS (1)
  - Device breakage [Recovered/Resolved]
